FAERS Safety Report 8332049-0 (Version None)
Quarter: 2012Q2

REPORT INFORMATION
  Report Type: 
  Country: None (occurrence: None)
  Receive Date: 20120502
  Receipt Date: 20120425
  Transmission Date: 20120825
  Serious: Yes (Disabling)
  Sender: FDA-Public Use
  Company Number: DK-MERCK-1201DNK00007

PATIENT
  Age: 80 Year
  Sex: Male

DRUGS (9)
  1. JANUVIA [Suspect]
     Indication: TYPE 2 DIABETES MELLITUS
     Route: 048
     Dates: start: 20100914, end: 20111209
  2. HYDROCHLOROTHIAZIDE AND LISINOPRIL [Concomitant]
     Route: 048
  3. VITAMIN D (UNSPECIFIED) [Concomitant]
     Route: 048
  4. LANSOPRAZOLE [Concomitant]
     Route: 048
  5. VITAMINS (UNSPECIFIED) [Concomitant]
     Route: 048
  6. METFORMIN [Concomitant]
     Route: 048
  7. CALCIUM (UNSPECIFIED) [Concomitant]
     Route: 048
  8. QUININE HYDROCHLORIDE [Concomitant]
     Route: 048
  9. INSULIN, BIPHASIC ISOPHANE [INJECTION] [Concomitant]
     Route: 058

REACTIONS (1)
  - VASCULAR DEMENTIA [None]
